FAERS Safety Report 8379928-6 (Version None)
Quarter: 2012Q2

REPORT INFORMATION
  Report Type: 
  Country: None (occurrence: None)
  Receive Date: 20120523
  Receipt Date: 20120521
  Transmission Date: 20120825
  Serious: Yes (Other)
  Sender: FDA-Public Use
  Company Number: US-PFIZER INC-2012122858

PATIENT
  Sex: Female
  Weight: 53 kg

DRUGS (2)
  1. LYRICA [Suspect]
     Dosage: 150 MG, 1X/DAY
     Route: 048
     Dates: start: 20120301
  2. LYRICA [Suspect]
     Indication: NERVE INJURY
     Dosage: 150 MG, 1X/DAY
     Route: 048
     Dates: start: 20070101

REACTIONS (3)
  - ALOPECIA [None]
  - SOMNOLENCE [None]
  - SPINAL COLUMN INJURY [None]
